FAERS Safety Report 23441937 (Version 1)
Quarter: 2024Q1

REPORT INFORMATION
  Report Type: Spontaneous
  Country: US (occurrence: US)
  Receive Date: 20240125
  Receipt Date: 20240125
  Transmission Date: 20240410
  Serious: No
  Sender: FDA-Public Use
  Company Number: US-OPELLA-2024OHG002267

PATIENT
  Sex: Female

DRUGS (1)
  1. GOLD BOND ULTIMATE CRACKED SKIN FILL AND PROTECT [Suspect]
     Active Substance: PETROLATUM

REACTIONS (2)
  - Pain in extremity [Unknown]
  - Expired product administered [Unknown]
